FAERS Safety Report 24742185 (Version 2)
Quarter: 2025Q1

REPORT INFORMATION
  Report Type: Spontaneous
  Country: US (occurrence: US)
  Receive Date: 20241217
  Receipt Date: 20250102
  Transmission Date: 20250408
  Serious: Yes (Hospitalization, Other)
  Sender: ABBVIE
  Company Number: US-ABBVIE-6046416

PATIENT
  Sex: Female

DRUGS (1)
  1. REFRESH PLUS [Suspect]
     Active Substance: CARBOXYMETHYLCELLULOSE SODIUM
     Indication: Product used for unknown indication
     Route: 047

REACTIONS (6)
  - Keratomileusis [Unknown]
  - Head injury [Unknown]
  - Loss of consciousness [Unknown]
  - Product storage error [Unknown]
  - Eye irritation [Unknown]
  - Wrong product administered [Unknown]
